FAERS Safety Report 5229312-9 (Version None)
Quarter: 2007Q1

REPORT INFORMATION
  Report Type: 
  Country: None (occurrence: None)
  Receive Date: 20070131
  Receipt Date: 20070126
  Transmission Date: 20070707
  Serious: Yes (Death, Hospitalization)
  Sender: FDA-Public Use
  Company Number: 163-21880-06100614

PATIENT
  Age: 84 Year
  Sex: Male

DRUGS (13)
  1. REVLIMID [Suspect]
     Indication: MYELODYSPLASTIC SYNDROME
     Dosage: 5 MG, 1 IN 1 D, ORAL
     Route: 048
     Dates: start: 20060818, end: 20061009
  2. COUMADIN [Concomitant]
  3. K-DUR 10 [Concomitant]
  4. ALLOPURINOL [Concomitant]
  5. COREG [Concomitant]
  6. VITAMIN B12 [Concomitant]
  7. DIGOXIN [Concomitant]
  8. PROCRIT [Concomitant]
  9. LASIX [Concomitant]
  10. AMARYL [Concomitant]
  11. PREVACID [Concomitant]
  12. LISINOPRIL [Concomitant]
  13. PAXIL [Concomitant]

REACTIONS (7)
  - DECREASED APPETITE [None]
  - DIARRHOEA [None]
  - DISEASE PROGRESSION [None]
  - MYELODYSPLASTIC SYNDROME [None]
  - NAUSEA [None]
  - PNEUMONIA ASPIRATION [None]
  - STOMACH DISCOMFORT [None]
